FAERS Safety Report 5824174-0 (Version None)
Quarter: 2008Q3

REPORT INFORMATION
  Report Type: 
  Country: None (occurrence: None)
  Receive Date: 20080718
  Receipt Date: 20080618
  Transmission Date: 20090109
  Serious: Yes (Other)
  Sender: FDA-Public Use
  Company Number: US-WYE-H04618008

PATIENT
  Age: 51 Year
  Sex: Female
  Weight: 81.72 kg

DRUGS (11)
  1. ADVIL PM [Suspect]
     Indication: INSOMNIA
     Dosage: 2 CAPSULE 1X PER 1 DAY, ORAL
     Route: 048
     Dates: start: 20080609, end: 20080609
  2. ADVIL PM [Suspect]
     Indication: MUSCULOSKELETAL DISCOMFORT
     Dosage: 2 CAPSULE 1X PER 1 DAY, ORAL
     Route: 048
     Dates: start: 20080609, end: 20080609
  3. CALCIUM (CALCIUM) [Concomitant]
  4. FLAXSEED (FLAXSEED) [Concomitant]
  5. VITAMIN D [Concomitant]
  6. VITAMIN B (VITAMIN B) [Concomitant]
  7. ZINC (ZINC) [Concomitant]
  8. MAGNESIUM (MAGNESIUM) [Concomitant]
  9. VITAMIN E [Concomitant]
  10. ADVAIR DISKUS 100/50 [Concomitant]
  11. MULTIVITAMINS (ASCORBIC ACID/ERGOCALCIFEROL/FOLIC ACID/NICOTINAMIDE/PA [Concomitant]

REACTIONS (2)
  - MUSCLE RIGIDITY [None]
  - RESTLESSNESS [None]
